FAERS Safety Report 18597794 (Version 2)
Quarter: 2020Q4

REPORT INFORMATION
  Report Type: Spontaneous
  Country: JP (occurrence: JP)
  Receive Date: 20201210
  Receipt Date: 20201214
  Transmission Date: 20210114
  Serious: Yes (Other)
  Sender: FDA-Public Use
  Company Number: JP-ROCHE-2729064

PATIENT
  Age: 14 Year
  Sex: Male

DRUGS (1)
  1. HEMLIBRA [Suspect]
     Active Substance: EMICIZUMAB-KXWH
     Indication: HAEMOPHILIA A WITHOUT INHIBITORS
     Route: 058
     Dates: start: 202008

REACTIONS (1)
  - Fracture [Recovered/Resolved]

NARRATIVE: CASE EVENT DATE: 202011
